FAERS Safety Report 9919388 (Version 2)
Quarter: 2014Q2

REPORT INFORMATION
  Report Type: Spontaneous
  Country: US (occurrence: US)
  Receive Date: 20140224
  Receipt Date: 20140402
  Transmission Date: 20141212
  Serious: Yes (Other)
  Sender: FDA-Public Use
  Company Number: US-PFIZER INC-2014050420

PATIENT
  Age: 62 Year
  Sex: Female
  Weight: 55.8 kg

DRUGS (1)
  1. LEVOXYL [Suspect]
     Indication: THYROID DISORDER
     Dosage: 112 UG, 1X/DAY

REACTIONS (1)
  - Fall [Not Recovered/Not Resolved]
